FAERS Safety Report 7495744-1 (Version None)
Quarter: 2011Q2

REPORT INFORMATION
  Report Type: 
  Country: None (occurrence: None)
  Receive Date: 20110523
  Receipt Date: 20110510
  Transmission Date: 20111010
  Serious: No
  Sender: FDA-Public Use
  Company Number: ZA-ELI_LILLY_AND_COMPANY-ZA201105003828

PATIENT
  Sex: Female

DRUGS (2)
  1. TEGRETOL [Concomitant]
     Indication: BIPOLAR DISORDER
     Dosage: UNK
     Route: 048
  2. ZYPREXA [Suspect]
     Indication: BIPOLAR DISORDER
     Dosage: 5 MG, UNK
     Route: 048

REACTIONS (1)
  - MENSTRUATION IRREGULAR [None]
